FAERS Safety Report 5280361-4 (Version None)
Quarter: 2007Q1

REPORT INFORMATION
  Report Type: 
  Country: None (occurrence: None)
  Receive Date: 20061229
  Receipt Date: 20061010
  Transmission Date: 20070707
  Serious: Yes (Other)
  Sender: FDA-Public Use
  Company Number: 2006UW19685

PATIENT
  Age: 65 Year
  Sex: Male
  Weight: 81.646 kg

DRUGS (7)
  1. CRESTOR [Suspect]
     Indication: BLOOD CHOLESTEROL INCREASED
     Dosage: 30 MG PO
     Route: 048
     Dates: start: 20060922
  2. PLAVIX [Concomitant]
  3. LISINOPRIL/HCT [Concomitant]
  4. GLUCOPHAGE [Concomitant]
  5. ZETIA [Concomitant]
  6. ASPIRIN [Concomitant]
  7. PRILOSEC [Concomitant]

REACTIONS (1)
  - ERECTILE DYSFUNCTION [None]
